FAERS Safety Report 7589000-0 (Version None)
Quarter: 2011Q3

REPORT INFORMATION
  Report Type: 
  Country: None (occurrence: None)
  Receive Date: 20110705
  Receipt Date: 20110613
  Transmission Date: 20111222
  Serious: Yes (Hospitalization)
  Sender: FDA-Public Use
  Company Number: US-BAYER-201031690NA

PATIENT
  Age: 27 Year
  Sex: Female
  Weight: 58.05 kg

DRUGS (10)
  1. YAZ [Suspect]
     Indication: PREMENSTRUAL SYNDROME
     Dosage: UNK
     Dates: start: 20070101, end: 20080101
  2. YAZ [Suspect]
     Indication: MENSTRUAL CYCLE MANAGEMENT
  3. TIGAN [Concomitant]
  4. BISMUTH SUBSALICYLATE [Concomitant]
  5. YASMIN [Suspect]
     Indication: PREMENSTRUAL SYNDROME
     Dosage: UNK
     Dates: start: 20070101, end: 20080101
  6. ZOFRAN [Concomitant]
  7. NAPROXEN (ALEVE) [Concomitant]
  8. YASMIN [Suspect]
     Indication: MENSTRUAL CYCLE MANAGEMENT
  9. LORA TAB [Concomitant]
     Dosage: UNK
  10. GAS X [Concomitant]

REACTIONS (5)
  - PANCREATITIS [None]
  - CHOLECYSTITIS CHRONIC [None]
  - CHOLELITHIASIS [None]
  - PAIN [None]
  - BILE DUCT STONE [None]
